FAERS Safety Report 7532841-6 (Version None)
Quarter: 2011Q2

REPORT INFORMATION
  Report Type: 
  Country: None (occurrence: None)
  Receive Date: 20110601
  Receipt Date: 20110523
  Transmission Date: 20111010
  Serious: Yes (Disabling, Other)
  Sender: FDA-Public Use
  Company Number: 2003-07-0663

PATIENT
  Age: 45 Year
  Sex: Male
  Weight: 81.1939 kg

DRUGS (8)
  1. PEG-INTRON [Suspect]
     Indication: HEPATITIS C
     Dosage: 150 MCG; QW; SC
     Route: 058
     Dates: start: 20020228, end: 20030226
  2. NEUMEGA [Suspect]
     Indication: RED BLOOD CELL ABNORMALITY
     Dates: end: 20020228
  3. REBETOL [Suspect]
     Indication: HEPATITIS C
     Dosage: ; QW;, ; QD;
     Dates: start: 20020228, end: 20030123
  4. REBETOL [Suspect]
     Indication: HEPATITIS C
     Dosage: ; QW;, ; QD;
     Dates: start: 20020228, end: 20020601
  5. REBETOL [Suspect]
     Indication: HEPATITIS C
     Dosage: ; QW;, ; QD;
     Dates: start: 20020601, end: 20030123
  6. MULTI-VITAMINS [Concomitant]
  7. NEXIUM [Concomitant]
  8. ENSURE [Concomitant]

REACTIONS (16)
  - CHEST PAIN [None]
  - WEIGHT DECREASED [None]
  - WEIGHT INCREASED [None]
  - ERECTILE DYSFUNCTION [None]
  - TUMOUR MARKER INCREASED [None]
  - MUSCLE ATROPHY [None]
  - ARTHRALGIA [None]
  - DRUG ABUSER [None]
  - VISION BLURRED [None]
  - THROMBOSIS [None]
  - DYSARTHRIA [None]
  - EATING DISORDER [None]
  - THYROID FUNCTION TEST ABNORMAL [None]
  - HYPOAESTHESIA [None]
  - DYSPEPSIA [None]
  - HEADACHE [None]
